FAERS Safety Report 8085221-1 (Version None)
Quarter: 2012Q1

REPORT INFORMATION
  Report Type: 
  Country: None (occurrence: None)
  Receive Date: 20120128
  Receipt Date: 20110329
  Transmission Date: 20120608
  Serious: No
  Sender: FDA-Public Use
  Company Number: US-ABBOTT-11P-163-0715015-00

PATIENT
  Age: 58 Year
  Sex: Female

DRUGS (7)
  1. HUMIRA [Suspect]
     Indication: ARTHRITIS
     Dates: start: 20110101
  2. METHOTREXATE [Concomitant]
     Indication: ARTHRITIS
     Dosage: 10 TABLETS WEEKLY
  3. FOLIC ACID [Concomitant]
     Indication: PRODUCT USED FOR UNKNOWN INDICATION
     Dosage: DAILY
  4. MULTI-VITAMIN [Concomitant]
     Indication: PRODUCT USED FOR UNKNOWN INDICATION
     Dosage: DAILY
  5. SULFASALAZINE [Concomitant]
     Indication: ARTHRITIS
  6. NEURONTIN [Concomitant]
     Indication: NEUROPATHY PERIPHERAL
  7. HUMIRA [Suspect]

REACTIONS (4)
  - INJECTION SITE PRURITUS [None]
  - INJECTION SITE URTICARIA [None]
  - INJECTION SITE RASH [None]
  - INJECTION SITE PAIN [None]
